FAERS Safety Report 18462756 (Version 1)
Quarter: 2020Q4

REPORT INFORMATION
  Report Type: Report from Study
  Country: DE (occurrence: DE)
  Receive Date: 20201104
  Receipt Date: 20201104
  Transmission Date: 20210114
  Serious: Yes (Other)
  Sender: FDA-Public Use
  Company Number: DE-GLAXOSMITHKLINE-DE2020GSK211081

PATIENT
  Age: 30 Year

DRUGS (8)
  1. FOSCARNET [Suspect]
     Active Substance: FOSCARNET
     Indication: ORAL HERPES
     Dosage: UNK
     Route: 042
  2. FLUDARABINE [Concomitant]
     Active Substance: FLUDARABINE PHOSPHATE
     Indication: SALVAGE THERAPY
     Dosage: UNK
  3. ACYCLOVIR. [Suspect]
     Active Substance: ACYCLOVIR
     Indication: ANTIVIRAL PROPHYLAXIS
     Dosage: 400 MG, TID
     Route: 048
  4. CYTARABINE. [Concomitant]
     Active Substance: CYTARABINE
     Indication: SALVAGE THERAPY
     Dosage: UNK
  5. ACYCLOVIR. [Suspect]
     Active Substance: ACYCLOVIR
     Indication: STOMATITIS
     Route: 061
  6. IDARUBICIN [Concomitant]
     Active Substance: IDARUBICIN
     Indication: SALVAGE THERAPY
     Dosage: UNK
  7. CYCLOPHOSPHAMIDE. [Concomitant]
     Active Substance: CYCLOPHOSPHAMIDE
     Indication: ALLOGENIC BONE MARROW TRANSPLANTATION THERAPY
     Dosage: UNK
  8. ACYCLOVIR. [Suspect]
     Active Substance: ACYCLOVIR
     Dosage: 5-10 MG/KG BODY WEIGHT THREE TIMES A DAY
     Route: 042

REACTIONS (5)
  - Renal impairment [Unknown]
  - Drug resistance [Unknown]
  - Drug ineffective [Unknown]
  - Pathogen resistance [Recovered/Resolved]
  - Lymphopenia [Unknown]
